FAERS Safety Report 15411065 (Version 1)
Quarter: 2018Q3

REPORT INFORMATION
  Report Type: Spontaneous
  Country: AL (occurrence: AL)
  Receive Date: 20180919
  Receipt Date: 20180919
  Transmission Date: 20181010
  Serious: No
  Sender: FDA-Public Use
  Company Number: None

PATIENT
  Age: 56 Year
  Sex: Female
  Weight: 59.4 kg

DRUGS (1)
  1. HYDROCODONE 10/325 GENERIC FOR NORCO [Suspect]
     Active Substance: ACETAMINOPHEN\HYDROCODONE BITARTRATE
     Indication: PAIN
     Dosage: ?          QUANTITY:120 TABLET(S);?
     Route: 048
     Dates: start: 20180720, end: 20180820

REACTIONS (4)
  - Inadequate analgesia [None]
  - Headache [None]
  - Somnolence [None]
  - Abdominal discomfort [None]

NARRATIVE: CASE EVENT DATE: 20180720
